FAERS Safety Report 4324751-2 (Version None)
Quarter: 2004Q1

REPORT INFORMATION
  Report Type: 
  Country: None (occurrence: None)
  Receive Date: 20040326
  Receipt Date: 20040302
  Transmission Date: 20041129
  Serious: Yes (Life-Threatening, Hospitalization)
  Sender: FDA-Public Use
  Company Number: WAES 0403USA00252

PATIENT
  Age: 31 Year
  Sex: Male
  Weight: 84 kg

DRUGS (4)
  1. VIOXX [Suspect]
     Indication: ARTHRALGIA
     Route: 048
     Dates: start: 20040218, end: 20040229
  2. VIOXX [Suspect]
     Route: 048
     Dates: start: 20040101, end: 20040101
  3. VIOXX [Suspect]
     Indication: LIMB INJURY
     Route: 048
     Dates: start: 20040218, end: 20040229
  4. VIOXX [Suspect]
     Route: 048
     Dates: start: 20040101, end: 20040101

REACTIONS (9)
  - ARTHRALGIA [None]
  - ASPIRATION BONE MARROW ABNORMAL [None]
  - CHILLS [None]
  - DRUG HYPERSENSITIVITY [None]
  - EPISTAXIS [None]
  - FATIGUE [None]
  - HYPERHIDROSIS [None]
  - IDIOPATHIC THROMBOCYTOPENIC PURPURA [None]
  - PYREXIA [None]
